FAERS Safety Report 20776156 (Version 3)
Quarter: 2022Q4

REPORT INFORMATION
  Report Type: Spontaneous
  Country: US (occurrence: US)
  Receive Date: 20220502
  Receipt Date: 20221202
  Transmission Date: 20230113
  Serious: No
  Sender: FDA-Public Use
  Company Number: US-PFIZER INC-202101618755

PATIENT
  Age: 75 Year
  Sex: Female

DRUGS (4)
  1. EUCRISA [Suspect]
     Active Substance: CRISABOROLE
     Indication: Dermatitis atopic
     Dosage: TWICE DAILY TO AFFECTED AREAS OF RASH
  2. EUCRISA [Suspect]
     Active Substance: CRISABOROLE
     Indication: Dermatitis contact
     Dosage: PEA SIZE AMOUNT AND INCREASE OVER TIME. APPLY TWICE A DAILY TO AFFECTED AREAS
  3. HALOBETASOL PROPIONATE [Concomitant]
     Active Substance: HALOBETASOL PROPIONATE
     Dosage: APPLY TO AREAS OF RASH TWICE DAILY FOR 2 WEEKS THEN STOP FOR 1 WEEK
  4. HYDROXYZINE [Concomitant]
     Active Substance: HYDROXYZINE HYDROCHLORIDE
     Indication: Pruritus
     Dosage: UNK

REACTIONS (2)
  - Blood prolactin increased [Unknown]
  - Fibromyalgia [Unknown]
